FAERS Safety Report 18427297 (Version 1)
Quarter: 2020Q4

REPORT INFORMATION
  Report Type: Spontaneous
  Country: US (occurrence: US)
  Receive Date: 20201026
  Receipt Date: 20201026
  Transmission Date: 20210114
  Serious: No
  Sender: FDA-Public Use
  Company Number: US-PFIZER INC-2020407546

PATIENT
  Age: 68 Year
  Sex: Female
  Weight: 56.7 kg

DRUGS (5)
  1. CORTEF [Concomitant]
     Active Substance: HYDROCORTISONE
     Dosage: UNK
  2. DELZICOL [Concomitant]
     Active Substance: MESALAMINE
     Dosage: UNK
  3. GENOTROPIN [Suspect]
     Active Substance: SOMATROPIN
     Indication: ADDISON^S DISEASE
     Dosage: UNK (WHEN I WAS ON 12, I WOULD HAVE TO DO A 0.2 ONE DAY AND THE 0.4 THE OTHER)
  4. NATURE-THROID [Concomitant]
     Active Substance: THYROID, PORCINE
     Dosage: UNK
  5. FLECAINIDE [Concomitant]
     Active Substance: FLECAINIDE
     Indication: ATRIAL FIBRILLATION
     Dosage: UNK

REACTIONS (4)
  - Product use in unapproved indication [Unknown]
  - Incorrect dosage administered [Unknown]
  - Feeling abnormal [Unknown]
  - Off label use [Unknown]
